FAERS Safety Report 15879042 (Version 1)
Quarter: 2019Q1

REPORT INFORMATION
  Report Type: Spontaneous
  Country: DE (occurrence: DE)
  Receive Date: 20190128
  Receipt Date: 20190128
  Transmission Date: 20190417
  Serious: Yes (Hospitalization, Other)
  Sender: FDA-Public Use
  Company Number: DE-009507513-1901DEU008221

PATIENT
  Age: 33 Year
  Sex: Female

DRUGS (2)
  1. PUREGON (FOLLITROPIN BETA) [Suspect]
     Active Substance: FOLLITROPIN
     Indication: ASSISTED REPRODUCTIVE TECHNOLOGY
     Dosage: 125 - 175 IE/DAY
  2. CETROTIDE [Suspect]
     Active Substance: CETRORELIX ACETATE
     Indication: ASSISTED REPRODUCTIVE TECHNOLOGY
     Dosage: 1 SYRINGE A DAY

REACTIONS (3)
  - Respiratory failure [Recovered/Resolved]
  - Prerenal failure [Recovered/Resolved]
  - Ovarian hyperstimulation syndrome [Recovered/Resolved]

NARRATIVE: CASE EVENT DATE: 2018
